FAERS Safety Report 20226282 (Version 3)
Quarter: 2022Q1

REPORT INFORMATION
  Report Type: Spontaneous
  Country: BR (occurrence: BR)
  Receive Date: 20211224
  Receipt Date: 20220325
  Transmission Date: 20220424
  Serious: Yes (Hospitalization, Other)
  Sender: FDA-Public Use
  Company Number: BR-ABBOTT-2021A-1344303

PATIENT
  Sex: Female
  Weight: 77 kg

DRUGS (3)
  1. SYNTHROID [Suspect]
     Active Substance: LEVOTHYROXINE SODIUM
     Indication: Hypothyroidism
     Dosage: DD: 75 MCG; IN FASTING
     Route: 048
  2. SYNTHROID [Suspect]
     Active Substance: LEVOTHYROXINE SODIUM
     Dosage: FLUCTUATES BETWEEN 88 MCG AND 75 MCG.
     Route: 048
  3. VITAMIN D NOS [Concomitant]
     Active Substance: VITAMIN D NOS
     Indication: Product used for unknown indication

REACTIONS (11)
  - Spinal disorder [Recovered/Resolved]
  - Diverticulitis [Unknown]
  - Hernia hiatus repair [Unknown]
  - Herpes zoster [Recovered/Resolved with Sequelae]
  - Blister [Unknown]
  - Scar [Unknown]
  - Gallbladder operation [Unknown]
  - Appendicectomy [Unknown]
  - Haemorrhoid operation [Unknown]
  - Wrong dose [Unknown]
  - Therapy interrupted [Unknown]

NARRATIVE: CASE EVENT DATE: 20140101
